FAERS Safety Report 4673377-X (Version None)
Quarter: 2005Q2

REPORT INFORMATION
  Report Type: 
  Country: None (occurrence: None)
  Receive Date: 20050520
  Receipt Date: 20050520
  Transmission Date: 20051028
  Serious: No
  Sender: FDA-Public Use
  Company Number: None

PATIENT
  Age: 68 Year
  Sex: Female
  Weight: 50.8029 kg

DRUGS (2)
  1. GEMCITABINE 1552 MG [Suspect]
     Indication: MESOTHELIOMA
     Dosage: IV  90 MIN
     Route: 030
     Dates: start: 20050406
  2. OXALIPLATIN [Suspect]
     Dosage: IV 2 MIN
     Route: 042
     Dates: start: 20050406

REACTIONS (5)
  - ALANINE AMINOTRANSFERASE INCREASED [None]
  - ASPARTATE AMINOTRANSFERASE INCREASED [None]
  - BLOOD ALKALINE PHOSPHATASE INCREASED [None]
  - BLOOD BILIRUBIN INCREASED [None]
  - ULTRASOUND SCAN ABNORMAL [None]
